FAERS Safety Report 21552105 (Version 1)
Quarter: 2022Q4

REPORT INFORMATION
  Report Type: Report from Study
  Country: US (occurrence: US)
  Receive Date: 20221104
  Receipt Date: 20221104
  Transmission Date: 20230113
  Serious: Yes (Hospitalization, Other)
  Sender: FDA-Public Use
  Company Number: US-SUN PHARMACEUTICAL INDUSTRIES LTD-2022R1-362055

PATIENT
  Age: 36 Year
  Sex: Male

DRUGS (1)
  1. CLOZAPINE [Suspect]
     Active Substance: CLOZAPINE
     Indication: Product used for unknown indication
     Dosage: UNK
     Route: 065

REACTIONS (6)
  - Affective disorder [Unknown]
  - Delusion [Unknown]
  - Paranoia [Unknown]
  - Schizophrenia [Unknown]
  - Treatment noncompliance [Unknown]
  - Nausea [Unknown]

NARRATIVE: CASE EVENT DATE: 20220901
